FAERS Safety Report 5298107-2 (Version None)
Quarter: 2007Q2

REPORT INFORMATION
  Report Type: 
  Country: None (occurrence: None)
  Receive Date: 20070416
  Receipt Date: 20070405
  Transmission Date: 20071010
  Serious: Yes (Other)
  Sender: FDA-Public Use
  Company Number: US-ELI_LILLY_AND_COMPANY-US200704001319

PATIENT
  Sex: Male

DRUGS (1)
  1. HUMULIN N [Suspect]
     Dosage: UNK, UNK
     Dates: start: 20050101

REACTIONS (1)
  - BLINDNESS [None]
